FAERS Safety Report 7206382-X (Version None)
Quarter: 2011Q1

REPORT INFORMATION
  Report Type: 
  Country: None (occurrence: None)
  Receive Date: 20110103
  Receipt Date: 20110103
  Transmission Date: 20110831
  Serious: Yes (Other)
  Sender: FDA-Public Use
  Company Number: PHHO2007AT12167

PATIENT
  Sex: Female
  Weight: 62 kg

DRUGS (5)
  1. CIPROXIN [Concomitant]
     Indication: FURUNCLE
     Dosage: 500 MG
     Dates: start: 20070628, end: 20070707
  2. OLMETEC [Concomitant]
     Dosage: 20 MG 2 X 1/2
     Dates: start: 20060607
  3. CERTICAN [Suspect]
     Dosage: UNK, UNK
     Route: 048
     Dates: start: 20070801, end: 20070816
  4. CERTICAN [Suspect]
     Dosage: REDUCED TO 2.5 MG / DAY
     Route: 048
     Dates: start: 20070817
  5. CERTICAN [Suspect]
     Indication: CONGENITAL CYSTIC KIDNEY DISEASE
     Dosage: UNK
     Route: 048
     Dates: start: 20070705, end: 20070719

REACTIONS (1)
  - NEUTROPENIA [None]
